FAERS Safety Report 5382789-0 (Version None)
Quarter: 2007Q3

REPORT INFORMATION
  Report Type: 
  Country: None (occurrence: None)
  Receive Date: 20070705
  Receipt Date: 20070625
  Transmission Date: 20080115
  Serious: Yes (Life-Threatening)
  Sender: FDA-Public Use
  Company Number: 07H-163-0312736-00

PATIENT
  Age: 25 Year
  Sex: Male
  Weight: 118 kg

DRUGS (4)
  1. QUELICIN [Suspect]
     Indication: PARALYSIS
     Dosage: 200 MG, ONCE, INTRAVENOUS
     Route: 042
     Dates: start: 20070603, end: 20070603
  2. LIDOCAINE [Concomitant]
  3. ETOMIDATE (ETOMIDATE SULFATE) [Concomitant]
  4. VECURONIUM (VECURONIUM) [Concomitant]

REACTIONS (7)
  - ANAESTHETIC COMPLICATION [None]
  - BRADYCARDIA [None]
  - CATHETER RELATED COMPLICATION [None]
  - COMA [None]
  - ENDOTRACHEAL INTUBATION COMPLICATION [None]
  - HYPOXIA [None]
  - NO THERAPEUTIC RESPONSE [None]
